FAERS Safety Report 10196134 (Version 1)
Quarter: 2014Q2

REPORT INFORMATION
  Report Type: Spontaneous
  Country: US (occurrence: US)
  Receive Date: 20140527
  Receipt Date: 20140527
  Transmission Date: 20141212
  Serious: Yes (Hospitalization, Other)
  Sender: FDA-Public Use
  Company Number: US-ELI_LILLY_AND_COMPANY-US201405005123

PATIENT
  Sex: Female

DRUGS (1)
  1. EVISTA [Suspect]
     Indication: OSTEOPOROSIS
     Dosage: UNK, QD
     Route: 065

REACTIONS (5)
  - Myocardial infarction [Unknown]
  - Ankle fracture [Unknown]
  - Fall [Unknown]
  - Hypoacusis [Unknown]
  - Pain [Unknown]
